FAERS Safety Report 17506549 (Version 1)
Quarter: 2020Q1

REPORT INFORMATION
  Report Type: Spontaneous
  Country: RU (occurrence: RU)
  Receive Date: 20200306
  Receipt Date: 20200306
  Transmission Date: 20200409
  Serious: Yes (Life-Threatening, Hospitalization)
  Sender: FDA-Public Use
  Company Number: RU-TEVA-2020-RU-1193192

PATIENT
  Age: 51 Year
  Sex: Female
  Weight: 62 kg

DRUGS (2)
  1. DEPAKIN [Concomitant]
     Active Substance: VALPROATE SODIUM
     Indication: EPILEPSY
     Route: 048
     Dates: start: 20111001
  2. TOPSAVER [Suspect]
     Active Substance: TOPIRAMATE
     Indication: EPILEPSY
     Dosage: 300 MILLIGRAM DAILY;
     Route: 048
     Dates: start: 20170321, end: 20170714

REACTIONS (1)
  - Status epilepticus [Recovered/Resolved]

NARRATIVE: CASE EVENT DATE: 20170714
